FAERS Safety Report 6341578-0 (Version None)
Quarter: 2009Q3

REPORT INFORMATION
  Report Type: 
  Country: None (occurrence: None)
  Receive Date: 20090904
  Receipt Date: 20090825
  Transmission Date: 20100115
  Serious: Yes (Other)
  Sender: FDA-Public Use
  Company Number: DE-GILEAD-2009-0023914

PATIENT

DRUGS (2)
  1. ATRIPLA [Suspect]
     Indication: HIV INFECTION
     Dates: start: 20090301
  2. TRIZIVIR [Concomitant]
     Dates: end: 20090301

REACTIONS (2)
  - HEPATIC ENZYME INCREASED [None]
  - HEPATIC STEATOSIS [None]
